FAERS Safety Report 11630891 (Version 2)
Quarter: 2015Q4

REPORT INFORMATION
  Report Type: Spontaneous
  Country: US (occurrence: US)
  Receive Date: 20151014
  Receipt Date: 20151130
  Transmission Date: 20160304
  Serious: Yes (Life-Threatening, Other)
  Sender: FDA-Public Use
  Company Number: US-ECLAT PHARMACEUTICALS-2015ECL00010

PATIENT
  Age: 68 Year
  Sex: Male
  Weight: 65.76 kg

DRUGS (10)
  1. NITROUS OXIDE. [Concomitant]
     Active Substance: NITROUS OXIDE
     Indication: ANAESTHESIA
     Dosage: UNK
     Route: 042
     Dates: start: 20150826, end: 20150826
  2. UNSPECIFIED NEUROMUSCULAR BLOCKING AGENTS [Concomitant]
     Indication: NEUROMUSCULAR BLOCKADE
     Dosage: UNK
     Dates: start: 20150826, end: 20150826
  3. NITROUS OXIDE. [Concomitant]
     Active Substance: NITROUS OXIDE
     Dosage: 4 MG, UNK
     Route: 042
  4. BLOXIVERZ [Suspect]
     Active Substance: NEOSTIGMINE METHYLSULFATE
     Indication: NEUROMUSCULAR BLOCKADE REVERSAL
     Dosage: 1.5 MG, UNK
     Route: 042
     Dates: start: 20150826, end: 20150826
  5. UNSPECIFIED ANESTHETICS [Concomitant]
     Indication: ANAESTHESIA
     Dosage: UNK
     Dates: start: 20150826, end: 20150826
  6. GLYCOPYRROLATE. [Suspect]
     Active Substance: GLYCOPYRROLATE
     Dosage: UNK
     Route: 042
     Dates: start: 20150826, end: 20150826
  7. OMEGA 3 FATTY ACIDS [Concomitant]
     Active Substance: OMEGA-3 FATTY ACIDS
  8. RANITIDINE [Concomitant]
     Active Substance: RANITIDINE\RANITIDINE HYDROCHLORIDE
  9. VITAMIN D [Concomitant]
     Active Substance: CHOLECALCIFEROL
  10. FLOMAX [Concomitant]
     Active Substance: TAMSULOSIN HYDROCHLORIDE

REACTIONS (4)
  - Hypertension [Recovered/Resolved]
  - Drug ineffective [Recovered/Resolved]
  - Tachycardia [Recovered/Resolved]
  - Respiratory depression [Recovered/Resolved]

NARRATIVE: CASE EVENT DATE: 20150826
